FAERS Safety Report 4475795-1 (Version None)
Quarter: 2004Q4

REPORT INFORMATION
  Report Type: 
  Country: None (occurrence: None)
  Receive Date: 20041015
  Receipt Date: 20041006
  Transmission Date: 20050328
  Serious: Yes (Other)
  Sender: FDA-Public Use
  Company Number: GB-GLAXOSMITHKLINE-B0347351A

PATIENT
  Age: 71 Year
  Sex: Male

DRUGS (4)
  1. AVODART [Suspect]
     Indication: PROSTATISM
     Dosage: 500MCG PER DAY
     Route: 048
     Dates: start: 20040824, end: 20040921
  2. ROSUVASTATIN [Concomitant]
     Dosage: 10MG PER DAY
     Route: 048
     Dates: start: 20040705
  3. RANITIDINE [Concomitant]
     Indication: GASTRITIS
     Dosage: 150MG PER DAY
     Route: 048
     Dates: start: 19980507
  4. DICLOFENAC [Concomitant]
     Indication: ARTHRALGIA
     Dosage: 75MG PER DAY
     Route: 048
     Dates: start: 20031107

REACTIONS (3)
  - BREAST TENDERNESS [None]
  - CHEST PAIN [None]
  - SWOLLEN TONGUE [None]
